FAERS Safety Report 8588466-7 (Version None)
Quarter: 2012Q3

REPORT INFORMATION
  Report Type: 
  Country: None (occurrence: None)
  Receive Date: 20120813
  Receipt Date: 20120802
  Transmission Date: 20120928
  Serious: Yes (Other)
  Sender: FDA-Public Use
  Company Number: US-JNJFOC-20120802932

PATIENT
  Sex: Female
  Weight: 68.04 kg

DRUGS (9)
  1. REMICADE [Suspect]
     Route: 042
     Dates: start: 20120101
  2. LEXAPRO [Concomitant]
     Indication: BIPOLAR DISORDER
     Route: 048
     Dates: start: 19920101
  3. TRAZODONE HYDROCHLORIDE [Concomitant]
     Indication: SLEEP DISORDER
     Route: 048
     Dates: start: 19920101
  4. LEXAPRO [Concomitant]
     Indication: DEPRESSION
     Route: 048
     Dates: start: 19920101
  5. CORTICOSTEROID [Suspect]
     Indication: HYPERSENSITIVITY
     Route: 065
  6. LEXAPRO [Concomitant]
     Indication: MANIA
     Route: 048
     Dates: start: 19920101
  7. PROTONIX [Concomitant]
     Indication: GASTRIC DISORDER
     Route: 048
     Dates: start: 20120101
  8. REMICADE [Suspect]
     Indication: RHEUMATOID ARTHRITIS
     Route: 042
     Dates: start: 20120701
  9. SYNTHROID [Concomitant]
     Indication: THYROID DISORDER
     Route: 048
     Dates: start: 19920101

REACTIONS (10)
  - INFUSION RELATED REACTION [None]
  - STAPHYLOCOCCAL INFECTION [None]
  - BLOOD CHOLESTEROL INCREASED [None]
  - SPINAL PAIN [None]
  - PSYCHOMOTOR HYPERACTIVITY [None]
  - HEADACHE [None]
  - NERVOUSNESS [None]
  - DISORIENTATION [None]
  - HYPERSENSITIVITY [None]
  - TREMOR [None]
